FAERS Safety Report 22972825 (Version 2)
Quarter: 2023Q4

REPORT INFORMATION
  Report Type: Report from Study
  Country: IT (occurrence: None)
  Receive Date: 20230922
  Receipt Date: 20231110
  Transmission Date: 20240109
  Serious: Yes (Hospitalization)
  Sender: FDA-Public Use
  Company Number: 2023A208362

PATIENT
  Age: 74 Year
  Sex: Male

DRUGS (10)
  1. EVUSHELD [Suspect]
     Active Substance: CILGAVIMAB\TIXAGEVIMAB
     Indication: COVID-19 prophylaxis
     Dosage: DOSAGGIO: 300 UNITA DI MISURA: MILLIGRAMMI FREQUENZA SOMMINISTRAZIONE: TOTALE VIA SOMMINISTRAZION...
     Route: 042
     Dates: start: 20220722, end: 20220722
  2. VINCRISTINE SULFATE [Concomitant]
     Active Substance: VINCRISTINE SULFATE
     Indication: Follicular lymphoma
     Dosage: DOSAGGIO: 1 UNITA DI MISURA: UNITA POSOLOGICA VIA SOMMINISTRAZIONE: ENDOVENOSA
  3. PREDNISONE [Concomitant]
     Active Substance: PREDNISONE
     Indication: Follicular lymphoma
     Dosage: DOSAGGIO: 1 UNITA DI MISURA: UNITA POSOLOGICA VIA SOMMINISTRAZIONE: ENDOVENOSA
  4. LAMIVUDINE [Concomitant]
     Active Substance: LAMIVUDINE
     Indication: Hepatitis B
     Dosage: DOSAGGIO: 100 UNITA DI MISURA: MILLIGRAMMI VIA SOMMINISTRAZIONE: ORALE
  5. DOXORUBICIN [Concomitant]
     Active Substance: DOXORUBICIN
     Indication: Follicular lymphoma
     Dosage: DOSAGGIO: 1 UNITA DI MISURA: UNITA POSOLOGICA VIA SOMMINISTRAZIONE: ENDOVENOSA
  6. RAMIPRIL [Concomitant]
     Active Substance: RAMIPRIL
     Indication: Hypertension
     Dosage: DOSAGGIO: 5 UNITA DI MISURA: MILLIGRAMMI VIA SOMMINISTRAZIONE: ORALE
  7. BISOPROLOL FUMARATE [Concomitant]
     Active Substance: BISOPROLOL FUMARATE
     Indication: Hypertension
     Dosage: DOSAGGIO: 2.5 UNITA DI MISURA: MILLIGRAMMI VIA SOMMINISTRAZIONE: ORALE
  8. RITUXIMAB [Concomitant]
     Active Substance: RITUXIMAB
     Indication: Follicular lymphoma
     Dosage: DOSAGGIO: 1 UNITA DI MISURA: UNITA POSOLOGICA VIA SOMMINISTRAZIONE: ENDOVENOSA
  9. CYCLOPHOSPHAMIDE [Concomitant]
     Active Substance: CYCLOPHOSPHAMIDE
     Indication: Follicular lymphoma
     Dosage: DOSAGGIO: 1 UNITA DI MISURA: UNITA POSOLOGICA VIA SOMMINISTRAZIONE: ENDOVENOSA
  10. PRADAXA [Concomitant]
     Active Substance: DABIGATRAN ETEXILATE MESYLATE
     Indication: Thrombosis prophylaxis
     Dosage: DOSAGGIO: 300 UNITA DI MISURA: MILLIGRAMMI VIA SOMMINISTRAZIONE: ORALE

REACTIONS (2)
  - Drug ineffective [Unknown]
  - COVID-19 [Recovering/Resolving]

NARRATIVE: CASE EVENT DATE: 20230107
